FAERS Safety Report 9485726 (Version 1)
Quarter: 2013Q3

REPORT INFORMATION
  Report Type: Spontaneous
  Country: US (occurrence: None)
  Receive Date: 20130827
  Receipt Date: 20130827
  Transmission Date: 20140515
  Serious: No
  Sender: FDA-Public Use
  Company Number: None

PATIENT
  Age: 56 Year
  Sex: Male
  Weight: 91 kg

DRUGS (11)
  1. LEVOFLOXACIN [Suspect]
     Indication: SEPTIC SHOCK
     Dosage: 250 MG Q24 IV N
     Route: 042
     Dates: start: 20130501, end: 20130504
  2. CLINDAMYCIN [Concomitant]
  3. HEPARIN [Concomitant]
  4. LINEZOLID [Concomitant]
  5. PROTONIX [Concomitant]
  6. PRECEDEX [Concomitant]
  7. DIPRIVAN [Concomitant]
  8. LASIX [Concomitant]
  9. NOREPINEPHRINE [Concomitant]
  10. SODIUM BICARBONATE [Concomitant]
  11. DUONEB [Concomitant]

REACTIONS (1)
  - Ventricular tachycardia [None]
